FAERS Safety Report 4732799-9 (Version None)
Quarter: 2005Q3

REPORT INFORMATION
  Report Type: 
  Country: None (occurrence: None)
  Receive Date: 20050801
  Receipt Date: 20050715
  Transmission Date: 20060218
  Serious: Yes (Death, Other)
  Sender: FDA-Public Use
  Company Number: L05-USA-02432-01

PATIENT
  Age: 20 Year
  Sex: Female

DRUGS (3)
  1. CARBAMAZEPINE [Suspect]
     Indication: TEMPORAL LOBE EPILEPSY
     Dosage: 200 MG BID
  2. VALPROATE [Concomitant]
  3. PARAMETHADIONE [Concomitant]

REACTIONS (5)
  - ASPIRATION [None]
  - CARDIAC ARREST [None]
  - DIZZINESS [None]
  - SUDDEN DEATH [None]
  - SYNCOPE [None]
